FAERS Safety Report 18995093 (Version 1)
Quarter: 2021Q1

REPORT INFORMATION
  Report Type: Spontaneous
  Country: US (occurrence: US)
  Receive Date: 20210310
  Receipt Date: 20210310
  Transmission Date: 20210420
  Serious: Yes (Death, Other)
  Sender: FDA-Public Use
  Company Number: US-BRISTOL-MYERS SQUIBB COMPANY-BMS-2021-022013

PATIENT
  Sex: Female
  Weight: 36.29 kg

DRUGS (2)
  1. ELIQUIS [Suspect]
     Active Substance: APIXABAN
     Indication: DEEP VEIN THROMBOSIS
  2. ELIQUIS [Suspect]
     Active Substance: APIXABAN
     Indication: HYPERCOAGULATION
     Dosage: 5 MILLIGRAM, BID
     Route: 048

REACTIONS (1)
  - Rectal cancer [Fatal]
